FAERS Safety Report 25884048 (Version 1)
Quarter: 2025Q4

REPORT INFORMATION
  Report Type: Report from Study
  Country: EU (occurrence: EU)
  Receive Date: 20251006
  Receipt Date: 20251006
  Transmission Date: 20260117
  Serious: Yes (Other)
  Sender: ROCHE
  Company Number: EU-ROCHE-10000401450

PATIENT

DRUGS (2)
  1. ATEZOLIZUMAB [Suspect]
     Active Substance: ATEZOLIZUMAB
     Indication: Hepatocellular carcinoma
     Route: 042
  2. BEVACIZUMAB [Suspect]
     Active Substance: BEVACIZUMAB
     Indication: Hepatocellular carcinoma
     Route: 042

REACTIONS (24)
  - Colitis [Unknown]
  - Pneumonia [Unknown]
  - Alanine aminotransferase increased [Unknown]
  - Aspartate aminotransferase increased [Unknown]
  - Adrenal insufficiency [Unknown]
  - Cushing^s syndrome [Unknown]
  - Hypothyroidism [Unknown]
  - Type 1 diabetes mellitus [Unknown]
  - Rash [Unknown]
  - Arthralgia [Unknown]
  - Platelet count decreased [Unknown]
  - Hypertension [Unknown]
  - Cardiac failure [Unknown]
  - Proteinuria [Unknown]
  - Portal vein thrombosis [Unknown]
  - Skin ulcer [Unknown]
  - Bleeding varicose vein [Unknown]
  - Gastrointestinal haemorrhage [Unknown]
  - Portal hypertension [Unknown]
  - Haemorrhage [Unknown]
  - Mucosal inflammation [Unknown]
  - Ascites [Unknown]
  - Hepatic encephalopathy [Unknown]
  - Jaundice [Unknown]
